FAERS Safety Report 6639944-9 (Version None)
Quarter: 2010Q1

REPORT INFORMATION
  Report Type: 
  Country: None (occurrence: None)
  Receive Date: 20100318
  Receipt Date: 20100312
  Transmission Date: 20100710
  Serious: Yes (Other)
  Sender: FDA-Public Use
  Company Number: CHPA2010US04981

PATIENT
  Age: 6 Year
  Sex: Female
  Weight: 22.676 kg

DRUGS (2)
  1. TRIAMINIC NIGHT TIME COLD + COUGH (NCH) [Suspect]
     Indication: NASOPHARYNGITIS
     Dosage: 1 TSP, QD
     Route: 048
     Dates: start: 20100311, end: 20100311
  2. TRIAMINIC NIGHT TIME COLD + COUGH (NCH) [Suspect]
     Indication: COUGH

REACTIONS (1)
  - CONVULSION [None]
